FAERS Safety Report 17867825 (Version 1)
Quarter: 2020Q2

REPORT INFORMATION
  Report Type: Spontaneous
  Country: IT (occurrence: IT)
  Receive Date: 20200606
  Receipt Date: 20200606
  Transmission Date: 20200714
  Serious: Yes (Hospitalization)
  Sender: FDA-Public Use
  Company Number: IT-AUROBINDO-AUR-APL-2020-026774

PATIENT
  Age: 37 Year
  Sex: Female

DRUGS (9)
  1. BISOPROLOL [Suspect]
     Active Substance: BISOPROLOL
     Indication: HYPERTENSION
     Dosage: UNK
     Route: 065
     Dates: start: 20200101, end: 20200516
  2. EUTIROX [Concomitant]
     Active Substance: LEVOTHYROXINE SODIUM
     Indication: PRODUCT USED FOR UNKNOWN INDICATION
     Dosage: UNK
     Route: 065
  3. TRITTICO [Suspect]
     Active Substance: TRAZODONE HYDROCHLORIDE
     Indication: DEPRESSION
     Dosage: UNK
     Route: 065
     Dates: start: 20200101, end: 20200516
  4. MEDROL [Concomitant]
     Active Substance: METHYLPREDNISOLONE
     Indication: PRODUCT USED FOR UNKNOWN INDICATION
     Dosage: UNK
     Route: 065
  5. RAMIPRIL. [Suspect]
     Active Substance: RAMIPRIL
     Indication: HYPERTENSION
     Dosage: UNK
     Route: 065
     Dates: start: 20200101, end: 20200516
  6. COUMADIN [Concomitant]
     Active Substance: WARFARIN SODIUM
     Indication: PRODUCT USED FOR UNKNOWN INDICATION
     Dosage: UNK
     Route: 065
  7. LUVION (CANRENOIC ACID) [Suspect]
     Active Substance: CANRENOIC ACID
     Indication: HYPERTENSION
     Dosage: UNK
     Route: 065
     Dates: start: 20200101, end: 20200516
  8. METFORMIN HYDROCHLORIDE. [Concomitant]
     Active Substance: METFORMIN HYDROCHLORIDE
     Indication: PRODUCT USED FOR UNKNOWN INDICATION
     Dosage: UNK
     Route: 065
  9. KCL-RETARD [Concomitant]
     Active Substance: POTASSIUM CHLORIDE
     Indication: PRODUCT USED FOR UNKNOWN INDICATION
     Dosage: UNK
     Route: 065

REACTIONS (3)
  - Dysarthria [Unknown]
  - Confusional state [Unknown]
  - Atrioventricular block [Unknown]

NARRATIVE: CASE EVENT DATE: 20200516
